FAERS Safety Report 10073141 (Version 1)
Quarter: 2014Q2

REPORT INFORMATION
  Report Type: Report from Study
  Country: US (occurrence: US)
  Receive Date: 20140411
  Receipt Date: 20140411
  Transmission Date: 20141212
  Serious: Yes (Hospitalization)
  Sender: FDA-Public Use
  Company Number: PHEH2014US007183

PATIENT
  Age: 34 Year
  Sex: Male
  Weight: 68.4 kg

DRUGS (13)
  1. TOBI PODHALER [Suspect]
     Indication: CYSTIC FIBROSIS
     Dosage: 112 MG, BID
     Route: 055
     Dates: start: 2013
  2. TOBI PODHALER [Suspect]
     Dosage: 112 MG, BID
     Route: 055
  3. ADVAIR [Concomitant]
     Dosage: UNK UKN, UNK
  4. ZYRTEC [Concomitant]
     Dosage: UNK UKN, UNK
  5. OMEPRAZOLE [Concomitant]
     Dosage: UNK UKN, UNK
  6. MULTIVIT//VITAMINS NOS [Concomitant]
     Dosage: UNK UKN, UNK
  7. CIPRO//CIPROFLOXACIN [Concomitant]
     Dosage: UNK UKN, UNK
  8. PREDNISONE [Concomitant]
     Dosage: UNK UKN, UNK
  9. COMBIVENT [Concomitant]
     Dosage: UNK UKN, UNK
  10. DUONEB [Concomitant]
     Dosage: UNK UKN, UNK
  11. PULMOZYME [Concomitant]
     Dosage: UNK UKN, UNK
  12. SINUS RINSE [Concomitant]
     Dosage: UNK UKN, UNK
  13. AZITHROMYCIN [Concomitant]
     Dosage: UNK UKN, UNK

REACTIONS (3)
  - Cystic fibrosis [Recovering/Resolving]
  - Condition aggravated [Recovering/Resolving]
  - Influenza [Recovering/Resolving]
